APPROVED DRUG PRODUCT: DIPHENHYDRAMINE HYDROCHLORIDE PRESERVATIVE FREE
Active Ingredient: DIPHENHYDRAMINE HYDROCHLORIDE
Strength: 50MG/ML
Dosage Form/Route: INJECTABLE;INJECTION
Application: A080873 | Product #003
Applicant: DR REDDYS LABORATORIES LTD
Approved: Approved Prior to Jan 1, 1982 | RLD: No | RS: No | Type: DISCN